FAERS Safety Report 4309685-1 (Version None)
Quarter: 2004Q1

REPORT INFORMATION
  Report Type: 
  Country: None (occurrence: None)
  Receive Date: 20040301
  Receipt Date: 20040224
  Transmission Date: 20041129
  Serious: Yes (Other)
  Sender: FDA-Public Use
  Company Number: 2004-02-1707

PATIENT
  Age: 57 Year
  Sex: Female

DRUGS (11)
  1. CLARITIN [Suspect]
     Dosage: 10 MG QD
     Dates: start: 20030603
  2. CLARITIN [Suspect]
  3. CELEXTAMINE (BETAMETHASONE/DEXCHLORPHENIRAMINE MALEATE) TABLETS [Suspect]
     Indication: RHINITIS PERENNIAL
     Dosage: 2T QD- 1T* ORAL
     Route: 048
     Dates: start: 19970513, end: 20030516
  4. CELEXTAMINE (BETAMETHASONE/DEXCHLORPHENIRAMINE MALEATE) TABLETS [Suspect]
     Indication: RHINITIS PERENNIAL
     Dosage: 2T QD- 1T* ORAL
     Route: 048
     Dates: start: 20030517, end: 20030602
  5. CELEXTAMINE (BETAMETHASONE/DEXCHLORPHENIRAMINE MALEATE) TABLETS [Suspect]
     Indication: RHINITIS PERENNIAL
     Dosage: 2T QD- 1T* ORAL
     Route: 048
     Dates: start: 20040217, end: 20040201
  6. CELEXTAMINE (BETAMETHASONE/DEXCHLORPHENIRAMINE MALEATE) TABLETS [Suspect]
     Indication: RHINITIS PERENNIAL
     Dosage: 2T QD- 1T* ORAL
     Route: 048
     Dates: start: 20030603, end: 20040215
  7. CELEXTAMINE (BETAMETHASONE/DEXCHLORPHENIRAMINE MALEATE) TABLETS [Suspect]
     Indication: RHINITIS PERENNIAL
     Dosage: 2T QD- 1T* ORAL
     Route: 048
     Dates: start: 20040201
  8. FLUITRAN [Concomitant]
  9. LIPITOR [Concomitant]
  10. THEO-DUR [Concomitant]
  11. BRICANYL [Concomitant]

REACTIONS (4)
  - ADRENAL INSUFFICIENCY [None]
  - DRY MOUTH [None]
  - OEDEMA PERIPHERAL [None]
  - SWELLING FACE [None]
